FAERS Safety Report 26040286 (Version 1)
Quarter: 2025Q4

REPORT INFORMATION
  Report Type: Spontaneous
  Country: US (occurrence: US)
  Receive Date: 20251113
  Receipt Date: 20251113
  Transmission Date: 20260118
  Serious: No
  Sender: AJANTA PHARMA USA INC
  Company Number: US-AJANTA-2025AJA00147

PATIENT
  Age: 67 Year
  Sex: Female
  Weight: 130 kg

DRUGS (9)
  1. DULOXETINE [Suspect]
     Active Substance: DULOXETINE
     Indication: Spinal osteoarthritis
     Dates: start: 20251021, end: 202510
  2. DULOXETINE [Suspect]
     Active Substance: DULOXETINE
     Indication: Spinal osteoarthritis
  3. DULOXETINE [Suspect]
     Active Substance: DULOXETINE
     Indication: Neuralgia
  4. TRAMADOL [Concomitant]
     Active Substance: TRAMADOL
     Indication: Neuralgia
  5. TRAMADOL [Concomitant]
     Active Substance: TRAMADOL
     Indication: Osteoarthritis
  6. LOSARTAN POTASSIUM [Concomitant]
     Active Substance: LOSARTAN POTASSIUM
     Dosage: TABLETS, FILM COATED
     Route: 048
  7. ONDANSETRON [Concomitant]
     Active Substance: ONDANSETRON
  8. DICYCLOMINE HYDROCHLORIDE [Concomitant]
     Active Substance: DICYCLOMINE HYDROCHLORIDE
  9. MELOXICAM [Concomitant]
     Active Substance: MELOXICAM

REACTIONS (1)
  - Gastrointestinal pain [Recovering/Resolving]

NARRATIVE: CASE EVENT DATE: 20251021
